FAERS Safety Report 9705631 (Version 1)
Quarter: 2013Q4

REPORT INFORMATION
  Report Type: Spontaneous
  Country: US (occurrence: US)
  Receive Date: 20131122
  Receipt Date: 20131122
  Transmission Date: 20140711
  Serious: No
  Sender: FDA-Public Use
  Company Number: US-GILEAD-2008-0017215

PATIENT
  Age: 53 Year
  Sex: Female
  Weight: 101.6 kg

DRUGS (10)
  1. LETAIRIS [Suspect]
     Indication: PULMONARY ARTERIAL HYPERTENSION
     Route: 048
     Dates: start: 20071008
  2. REVATIO [Concomitant]
  3. FUROSEMIDE [Concomitant]
  4. SPIRONOLACTONE [Concomitant]
  5. COUMADIN [Concomitant]
  6. ZOCOR [Concomitant]
  7. SYNTHROID [Concomitant]
  8. K-LOR [Concomitant]
  9. IRON [Concomitant]
  10. FOLIC ACID [Concomitant]

REACTIONS (2)
  - Oedema peripheral [None]
  - Nasal congestion [None]
